FAERS Safety Report 22052854 (Version 1)
Quarter: 2023Q1

REPORT INFORMATION
  Report Type: Spontaneous
  Country: CA (occurrence: None)
  Receive Date: 20230302
  Receipt Date: 20230302
  Transmission Date: 20230417
  Serious: Yes (Life-Threatening, Hospitalization)
  Sender: FDA-Public Use
  Company Number: CA-ROCHE-3290856

PATIENT
  Age: 67 Year
  Sex: Male
  Weight: 111 kg

DRUGS (6)
  1. OBINUTUZUMAB [Suspect]
     Active Substance: OBINUTUZUMAB
     Indication: Chronic lymphocytic leukaemia
     Dosage: ONCE
     Route: 042
  2. ATORVASTATIN CALCIUM [Concomitant]
     Active Substance: ATORVASTATIN CALCIUM
  3. METFORMIN [Concomitant]
     Active Substance: METFORMIN HYDROCHLORIDE
  4. NOVORAPID [Concomitant]
     Active Substance: INSULIN ASPART
  5. RAMIPRIL [Concomitant]
     Active Substance: RAMIPRIL
  6. TRESIBA [Concomitant]
     Active Substance: INSULIN DEGLUDEC

REACTIONS (5)
  - Cytokine storm [Recovering/Resolving]
  - Endotracheal intubation [Recovering/Resolving]
  - Mechanical ventilation [Recovering/Resolving]
  - Respiratory failure [Recovering/Resolving]
  - Vasoplegia syndrome [Recovering/Resolving]
